FAERS Safety Report 19855123 (Version 1)
Quarter: 2021Q3

REPORT INFORMATION
  Report Type: Spontaneous
  Country: PT (occurrence: PT)
  Receive Date: 20210920
  Receipt Date: 20210920
  Transmission Date: 20211014
  Serious: Yes (Hospitalization, Other)
  Sender: FDA-Public Use
  Company Number: PT-MICRO LABS LIMITED-ML2021-02270

PATIENT
  Age: 53 Year
  Sex: Female

DRUGS (3)
  1. CELECOXIB. [Suspect]
     Active Substance: CELECOXIB
  2. DEFLAZACORT [Concomitant]
     Active Substance: DEFLAZACORT
  3. SULFASALAZINE. [Concomitant]
     Active Substance: SULFASALAZINE

REACTIONS (2)
  - Tubulointerstitial nephritis [Recovered/Resolved]
  - Glomerulonephritis rapidly progressive [Recovered/Resolved]
